FAERS Safety Report 22270826 (Version 1)
Quarter: 2023Q2

REPORT INFORMATION
  Report Type: Spontaneous
  Country: GB (occurrence: GB)
  Receive Date: 20230501
  Receipt Date: 20230501
  Transmission Date: 20230721
  Serious: Yes (Other)
  Sender: FDA-Public Use
  Company Number: GB-MHRA-MED-202304251517072070-QDBZM

PATIENT
  Sex: Male

DRUGS (1)
  1. AUBAGIO [Suspect]
     Active Substance: TERIFLUNOMIDE
     Indication: Adverse drug reaction
     Dosage: 14 MG
     Dates: start: 20230224, end: 20230408

REACTIONS (1)
  - Paranoia [Recovered/Resolved]

NARRATIVE: CASE EVENT DATE: 20230407
